FAERS Safety Report 16004872 (Version 4)
Quarter: 2019Q1

REPORT INFORMATION
  Report Type: Report from Study
  Country: IT (occurrence: IT)
  Receive Date: 20190226
  Receipt Date: 20190315
  Transmission Date: 20190418
  Serious: Yes (Hospitalization, Other)
  Sender: FDA-Public Use
  Company Number: IT-ACCORD-109166

PATIENT
  Age: 67 Year
  Sex: Female

DRUGS (10)
  1. AMITRIPTYLINE [Suspect]
     Active Substance: AMITRIPTYLINE
     Dosage: END DATE 08-JUL-2018
     Route: 048
     Dates: start: 20180708
  2. ACETYLSALICYLIC ACID [Suspect]
     Active Substance: ASPIRIN
     Dosage: END DATE 08-JUL-2018
     Route: 048
     Dates: start: 20180708
  3. COMPENDIUM [Suspect]
     Active Substance: BROMAZEPAM
     Dosage: TOTAL
     Route: 048
     Dates: start: 20180708, end: 20180708
  4. VENLAFAXINE [Suspect]
     Active Substance: VENLAFAXINE HYDROCHLORIDE
     Dosage: , END DATE 08-JUL-2018
     Route: 048
     Dates: start: 20180708
  5. RAMIPRIL. [Suspect]
     Active Substance: RAMIPRIL
     Route: 048
     Dates: start: 20180708
  6. TRIAZOLAM. [Suspect]
     Active Substance: TRIAZOLAM
     Dosage: 30 DF
     Route: 048
     Dates: start: 20180708, end: 20180708
  7. PANTOPRAZOLE [Suspect]
     Active Substance: PANTOPRAZOLE
     Dosage: TOTAL,END DATE 08-JUL-2018
     Route: 048
     Dates: start: 20180708
  8. LAROXYL [Suspect]
     Active Substance: AMITRIPTYLINE HYDROCHLORIDE
     Dosage: TOTAL, STRENGTH 25 MG
     Route: 048
     Dates: start: 20180708
  9. BROMAZEPAM [Suspect]
     Active Substance: BROMAZEPAM
     Dosage: 20 ML
     Route: 048
     Dates: start: 20180708, end: 20180708
  10. HALCION [Suspect]
     Active Substance: TRIAZOLAM
     Route: 048
     Dates: start: 20180708, end: 20180708

REACTIONS (4)
  - Overdose [Unknown]
  - Confusional state [Recovering/Resolving]
  - Drug abuse [Unknown]
  - Sopor [Recovering/Resolving]

NARRATIVE: CASE EVENT DATE: 20180708
